FAERS Safety Report 11267361 (Version 1)
Quarter: 2015Q3

REPORT INFORMATION
  Report Type: Spontaneous
  Country: US (occurrence: US)
  Receive Date: 20150713
  Receipt Date: 20150713
  Transmission Date: 20151125
  Serious: Yes (Hospitalization)
  Sender: FDA-Public Use
  Company Number: US-EMD SERONO-234952J09USA

PATIENT
  Age: 71 Year
  Sex: Female

DRUGS (3)
  1. REBIF [Suspect]
     Active Substance: INTERFERON BETA-1A
     Indication: MULTIPLE SCLEROSIS
     Route: 058
     Dates: start: 20090406, end: 2011
  2. CAMINOPYRIOINE-SUSTAINED RELEASE [Concomitant]
     Indication: BALANCE DISORDER
     Dates: start: 200911, end: 200911
  3. CAMINOPYRIOINE-SUSTAINED RELEASE [Concomitant]
     Indication: MEMORY IMPAIRMENT

REACTIONS (4)
  - Feeling cold [Recovered/Resolved]
  - Hallucination [Recovering/Resolving]
  - Tremor [Recovered/Resolved]
  - Dementia [Recovering/Resolving]

NARRATIVE: CASE EVENT DATE: 200911
